FAERS Safety Report 5530140-5 (Version None)
Quarter: 2007Q4

REPORT INFORMATION
  Report Type: 
  Country: None (occurrence: None)
  Receive Date: 20071128
  Receipt Date: 20071128
  Transmission Date: 20080405
  Serious: Yes (Life-Threatening, Hospitalization)
  Sender: FDA-Public Use
  Company Number: None

PATIENT
  Age: 29 Year
  Sex: Male
  Weight: 86.1834 kg

DRUGS (1)
  1. SEROQUEL [Suspect]
     Indication: SCHIZOAFFECTIVE DISORDER
     Dosage: 900MG BEDTIME PO
     Route: 048
     Dates: start: 20041201, end: 20071101

REACTIONS (5)
  - ALCOHOL USE [None]
  - INFUSION RELATED REACTION [None]
  - MEDICATION ERROR [None]
  - MEMORY IMPAIRMENT [None]
  - THROMBOCYTOPENIA [None]
